FAERS Safety Report 6943856-0 (Version None)
Quarter: 2010Q3

REPORT INFORMATION
  Report Type: 
  Country: None (occurrence: None)
  Receive Date: 20100826
  Receipt Date: 20100818
  Transmission Date: 20110219
  Serious: Yes (Hospitalization)
  Sender: FDA-Public Use
  Company Number: A0876524A

PATIENT
  Age: 70 Year
  Sex: Female

DRUGS (4)
  1. FLOVENT [Suspect]
     Dosage: 2PUFF TWICE PER DAY
     Route: 055
     Dates: start: 20100401, end: 20100815
  2. BLOOD PRESSURE MEDICATION [Concomitant]
  3. VERAPAMIL [Concomitant]
  4. THEOPHYLLINE [Concomitant]

REACTIONS (3)
  - PNEUMONITIS [None]
  - STOMATITIS [None]
  - TONGUE ULCERATION [None]
